FAERS Safety Report 10436158 (Version 1)
Quarter: 2014Q3

REPORT INFORMATION
  Report Type: Spontaneous
  Country: US (occurrence: None)
  Receive Date: 20140905
  Receipt Date: 20140905
  Transmission Date: 20150326
  Serious: Yes (Disabling, Other)
  Sender: FDA-Public Use
  Company Number: None

PATIENT
  Age: 78 Year
  Sex: Female
  Weight: 63.5 kg

DRUGS (1)
  1. RECLAST [Suspect]
     Active Substance: ZOLEDRONIC ACID
     Indication: BONE DISORDER
     Dosage: ONE YEAR DOSAGE?ANNUALLY?IV INFUSION
     Route: 042
     Dates: start: 20140610

REACTIONS (3)
  - Mobility decreased [None]
  - Pain [None]
  - Bedridden [None]

NARRATIVE: CASE EVENT DATE: 20140610
